FAERS Safety Report 23932547 (Version 1)
Quarter: 2024Q2

REPORT INFORMATION
  Report Type: Spontaneous
  Country: US (occurrence: None)
  Receive Date: 20240531
  Receipt Date: 20240531
  Transmission Date: 20240716
  Serious: No
  Sender: FDA-Public Use
  Company Number: None

PATIENT
  Age: 38 Year
  Sex: Female
  Weight: 60.75 kg

DRUGS (6)
  1. SUTAB [Suspect]
     Active Substance: MAGNESIUM SULFATE\POTASSIUM CHLORIDE\SODIUM SULFATE
     Indication: Colonoscopy
     Route: 048
     Dates: start: 20240529, end: 20240529
  2. LEVOTHYROXINE [Concomitant]
     Active Substance: LEVOTHYROXINE\LEVOTHYROXINE SODIUM
  3. ROSUVASTATIN [Concomitant]
     Active Substance: ROSUVASTATIN
  4. NORETHINDRONE [Concomitant]
     Active Substance: NORETHINDRONE
  5. CHILDREN^S MULTIVITAMIN [Concomitant]
  6. MELATONIN [Concomitant]
     Active Substance: MELATONIN

REACTIONS (8)
  - Chills [None]
  - Burning sensation [None]
  - Pain in extremity [None]
  - Dizziness [None]
  - Nausea [None]
  - Vomiting [None]
  - Haematochezia [None]
  - Asthenia [None]

NARRATIVE: CASE EVENT DATE: 20240529
